FAERS Safety Report 7423055-9 (Version None)
Quarter: 2011Q2

REPORT INFORMATION
  Report Type: 
  Country: None (occurrence: None)
  Receive Date: 20110419
  Receipt Date: 20110409
  Transmission Date: 20111010
  Serious: Yes (Other)
  Sender: FDA-Public Use
  Company Number: ES-ELI_LILLY_AND_COMPANY-ES201104002788

PATIENT
  Age: 61 Year
  Sex: Male

DRUGS (12)
  1. METAMIZOL [Concomitant]
     Indication: PAIN
     Dosage: 575 MG, EVERY 8 HRS
  2. SEVREDOL [Concomitant]
     Indication: PAIN
     Dosage: 100 MG, IF NEEDED
  3. EUTIROX [Concomitant]
     Indication: HYPOTHYROIDISM
     Dosage: 100 MG, QD
  4. MST [Concomitant]
     Indication: PAIN
     Dosage: 200 MG, QD
  5. IBUPROFENO [Concomitant]
     Dosage: 1200 MG, QD
  6. FLUMIL                             /00082801/ [Concomitant]
     Indication: ADJUVANT THERAPY
     Dosage: 600 MG, QD
  7. GABAPENTINA [Concomitant]
     Indication: ADJUVANT THERAPY
     Dosage: 300 MG, EVERY 8 HRS
  8. MOVIPREP [Concomitant]
     Indication: CONSTIPATION
     Dosage: UNK, AS NEEDED
  9. FORTECORTIN [Concomitant]
     Indication: ADJUVANT THERAPY
     Dosage: 4 MG, QD
  10. TRANKIMAZIN [Concomitant]
     Indication: ANXIETY
     Dosage: UNK, AS NEEDED
  11. ALIMTA [Suspect]
     Indication: LUNG NEOPLASM MALIGNANT
     Dosage: UNK
     Dates: start: 20110404, end: 20110404
  12. ACFOL [Concomitant]
     Dosage: UNK

REACTIONS (3)
  - PRODUCTIVE COUGH [None]
  - DYSPHONIA [None]
  - DYSPNOEA [None]
